FAERS Safety Report 6482280-4 (Version None)
Quarter: 2009Q4

REPORT INFORMATION
  Report Type: 
  Country: None (occurrence: None)
  Receive Date: 20091208
  Receipt Date: 20090419
  Transmission Date: 20100525
  Serious: No
  Sender: FDA-Public Use
  Company Number: US-AMGEN-KDL343532

PATIENT
  Sex: Female
  Weight: 65.8 kg

DRUGS (7)
  1. ENBREL [Suspect]
     Indication: PSORIASIS
     Route: 058
     Dates: start: 20080716
  2. KENALOG [Concomitant]
     Dates: start: 20070709
  3. ELIDEL [Concomitant]
     Dates: start: 20070709
  4. CLOBETASOL PROPIONATE [Concomitant]
     Dates: start: 20080331
  5. FLUOCINONIDE [Concomitant]
     Dates: start: 20080123
  6. CLOBETASOL PROPIONATE [Concomitant]
     Dates: start: 20080331
  7. PROTOPIC [Concomitant]
     Dates: start: 20090330

REACTIONS (5)
  - HYPERSENSITIVITY [None]
  - MENORRHAGIA [None]
  - NASOPHARYNGITIS [None]
  - OLIGOMENORRHOEA [None]
  - PRURITUS [None]
